FAERS Safety Report 4967582-2 (Version None)
Quarter: 2006Q2

REPORT INFORMATION
  Report Type: 
  Country: None (occurrence: None)
  Receive Date: 20060407
  Receipt Date: 20060407
  Transmission Date: 20061013
  Serious: Yes (Hospitalization)
  Sender: FDA-Public Use
  Company Number: None

PATIENT
  Age: 88 Year
  Sex: Male
  Weight: 87.5442 kg

DRUGS (9)
  1. NITROFURANTOIN [Suspect]
     Indication: URINARY TRACT INFECTION
     Dosage: 50 MG   QID   PO
     Route: 048
     Dates: start: 20060316, end: 20060322
  2. GLYBURIDE [Concomitant]
  3. ASPIRIN [Concomitant]
  4. LISINOPRIL [Concomitant]
  5. METFORMIN HYDROCHLORIDE [Concomitant]
  6. ROSIGLITAZONE [Concomitant]
  7. SIMVASTATIN [Concomitant]
  8. PROPOXYPHENE HCL AND ACETAMINOPHEN [Concomitant]
  9. FLUNISOLIDE [Concomitant]

REACTIONS (1)
  - PANCREATITIS [None]
